FAERS Safety Report 22651697 (Version 1)
Quarter: 2023Q2

REPORT INFORMATION
  Report Type: Spontaneous
  Country: US (occurrence: US)
  Receive Date: 20230628
  Receipt Date: 20230628
  Transmission Date: 20230722
  Serious: No
  Sender: FDA-Public Use
  Company Number: US-CTI BIOPHARMA-2023US03508

PATIENT

DRUGS (13)
  1. VONJO [Suspect]
     Active Substance: PACRITINIB
     Indication: Myelofibrosis
     Dosage: 200 MG, BID
     Route: 048
     Dates: start: 20230307
  2. CALTRATE [Concomitant]
     Active Substance: CALCIUM CARBONATE
  3. FLAXSEED [Concomitant]
     Active Substance: FLAX SEED
  4. FOLIC ACID [Concomitant]
     Active Substance: FOLIC ACID
  5. LEVOTHYROXINE [Concomitant]
     Active Substance: LEVOTHYROXINE
  6. LISINOPRIL [Concomitant]
     Active Substance: LISINOPRIL
  7. METOPROLOL SUCCINATE [Concomitant]
     Active Substance: METOPROLOL SUCCINATE
  8. VITAMINS [Concomitant]
     Active Substance: VITAMINS
  9. POTASSIUM CHLORIDE [Concomitant]
     Active Substance: POTASSIUM CHLORIDE
  10. PREDNISONE [Concomitant]
     Active Substance: PREDNISONE
  11. PROLIA [Concomitant]
     Active Substance: DENOSUMAB
  12. VITAMIN D3 [Concomitant]
     Active Substance: CHOLECALCIFEROL
  13. PRAVASTATIN [Concomitant]
     Active Substance: PRAVASTATIN

REACTIONS (5)
  - Rash [Unknown]
  - Brain fog [Unknown]
  - Dizziness [Unknown]
  - Platelet count decreased [Unknown]
  - Haemoglobin decreased [Unknown]
